FAERS Safety Report 12983000 (Version 1)
Quarter: 2016Q4

REPORT INFORMATION
  Report Type: Spontaneous
  Country: US (occurrence: US)
  Receive Date: 20161129
  Receipt Date: 20161129
  Transmission Date: 20170207
  Serious: No
  Sender: FDA-Public Use
  Company Number: US-MALLINCKRODT-T201601345

PATIENT
  Age: 69 Year
  Sex: Female
  Weight: 49 kg

DRUGS (2)
  1. FENTANYL TRANSDERMAL SYSTEM [Suspect]
     Active Substance: FENTANYL
     Dosage: 25MCG/HR;  Q48HR
     Route: 062
  2. FENTANYL TRANSDERMAL SYSTEM [Suspect]
     Active Substance: FENTANYL
     Indication: PAIN
     Dosage: 100MCG/HR; Q48HR
     Route: 062

REACTIONS (3)
  - Drug ineffective [Recovered/Resolved]
  - Intentional product use issue [Recovered/Resolved]
  - Product adhesion issue [Recovered/Resolved]

NARRATIVE: CASE EVENT DATE: 20160328
